FAERS Safety Report 5470183-3 (Version None)
Quarter: 2007Q3

REPORT INFORMATION
  Report Type: 
  Country: None (occurrence: None)
  Receive Date: 20070924
  Receipt Date: 20070911
  Transmission Date: 20080115
  Serious: Yes (Other)
  Sender: FDA-Public Use
  Company Number: 2007330872

PATIENT
  Age: 45 Year
  Sex: Male

DRUGS (8)
  1. BACITRACIN NEOMYCIN SULFATE POLYMYXIN B SULFATE DIPERODON HCL [Suspect]
     Indication: LACERATION
     Dosage: TOPICAL
     Route: 061
  2. NEOSPORIN [Suspect]
     Dosage: TOPICAL
     Route: 061
  3. ACETAMINOPHEN [Suspect]
     Dosage: ORAL
     Route: 048
  4. ALL OTHER NON-THERAPEUTIC PRODUCTS(ALL OTHER NON-THERAPEUTIC PRODUCTS) [Suspect]
  5. EXCEDRIN(ACETYLSALICYLIC ACID, CAFFEINE, PARACETAMOL, SALICYLAMIDE) [Concomitant]
  6. ASCORBIC ACID [Concomitant]
  7. CHONDROITIN SULFATE [Concomitant]
  8. GLUCOSAMINE [Concomitant]

REACTIONS (14)
  - ANXIETY [None]
  - COUGH [None]
  - DIARRHOEA [None]
  - DIZZINESS [None]
  - ERYTHEMA [None]
  - HYPERHIDROSIS [None]
  - HYPOTENSION [None]
  - LABORATORY TEST ABNORMAL [None]
  - LIP SWELLING [None]
  - LOCAL SWELLING [None]
  - PHARYNGEAL OEDEMA [None]
  - PRURITUS [None]
  - SKIN TEST POSITIVE [None]
  - URTICARIA [None]
